FAERS Safety Report 7839064-1 (Version None)
Quarter: 2011Q4

REPORT INFORMATION
  Report Type: 
  Country: None (occurrence: None)
  Receive Date: 20111024
  Receipt Date: 20110930
  Transmission Date: 20120403
  Serious: Yes (Hospitalization, Disabling)
  Sender: FDA-Public Use
  Company Number: PHHO2011FR16721

PATIENT
  Sex: Male
  Weight: 101 kg

DRUGS (2)
  1. IRBESARTAN [Concomitant]
     Indication: HYPERTENSION
     Dosage: 300 MG, BID
     Route: 048
  2. TASIGNA [Suspect]
     Indication: CHRONIC MYELOID LEUKAEMIA
     Dosage: 400 MG, BID
     Route: 048
     Dates: start: 20080924, end: 20110927

REACTIONS (1)
  - MYOCARDIAL INFARCTION [None]
